FAERS Safety Report 9527541 (Version 1)
Quarter: 2013Q3

REPORT INFORMATION
  Report Type: Spontaneous
  Country: US (occurrence: None)
  Receive Date: 20130913
  Receipt Date: 20130913
  Transmission Date: 20140515
  Serious: Yes (Other)
  Sender: FDA-Public Use
  Company Number: None

PATIENT
  Age: 45 Year
  Sex: Female
  Weight: 63.5 kg

DRUGS (2)
  1. SERTRALINE - GENERIC VERSION 25MG CAMBER [Suspect]
     Indication: PANIC DISORDER
     Dosage: 1 TABLET  ONCE DAILY  TAKEN BY MOUTH
     Route: 048
     Dates: start: 20111123, end: 20111128
  2. SERTRALINE - GENERIC VERSION 25MG CAMBER [Suspect]
     Indication: ANXIETY
     Dosage: 1 TABLET  ONCE DAILY  TAKEN BY MOUTH
     Route: 048
     Dates: start: 20111123, end: 20111128

REACTIONS (4)
  - Product substitution issue [None]
  - Vertigo [None]
  - Impaired work ability [None]
  - Impaired driving ability [None]
